FAERS Safety Report 23303269 (Version 1)
Quarter: 2023Q4

REPORT INFORMATION
  Report Type: Spontaneous
  Country: US (occurrence: US)
  Receive Date: 20231215
  Receipt Date: 20231215
  Transmission Date: 20240109
  Serious: No
  Sender: FDA-Public Use
  Company Number: US-ABBVIE-2309133US

PATIENT
  Sex: Female

DRUGS (1)
  1. BOTOX [Suspect]
     Active Substance: ONABOTULINUMTOXINA
     Indication: Muscle spasticity
     Dosage: TIME INTERVAL: AS NECESSARY: DOSE DESC: UNK UNK, SINGLE
     Route: 030
     Dates: start: 2022, end: 2022

REACTIONS (1)
  - Peroneal nerve palsy [Recovering/Resolving]

NARRATIVE: CASE EVENT DATE: 20220101
